FAERS Safety Report 16173451 (Version 3)
Quarter: 2019Q2

REPORT INFORMATION
  Report Type: Spontaneous
  Country: KR (occurrence: KR)
  Receive Date: 20190409
  Receipt Date: 20190506
  Transmission Date: 20190711
  Serious: Yes (Hospitalization, Other)
  Sender: FDA-Public Use
  Company Number: KR-009507513-1903KOR009781

PATIENT
  Sex: Female

DRUGS (39)
  1. KEYTRUDA [Suspect]
     Active Substance: PEMBROLIZUMAB
     Indication: METASTASES TO LIVER
     Dosage: 100MG/4ML; QUANTITIY: 2, DAYS: 1
     Dates: start: 20190327, end: 20190327
  2. SODIUM CHLORIDE. [Concomitant]
     Active Substance: SODIUM CHLORIDE
     Dosage: QUANTITIY: 3, DAYS: 2
     Dates: start: 20190326, end: 20190327
  3. LACIDOFIL [Concomitant]
     Active Substance: LACTOBACILLUS ACIDOPHILUS\LACTOBACILLUS RHAMNOSUS
     Dosage: QUANTITY 2, DAYS 6
     Dates: start: 20190306, end: 20190311
  4. MEIACT [Concomitant]
     Active Substance: CEFDITOREN PIVOXIL
     Dosage: QUANTITY 3; DAYS 4
     Dates: start: 20190308, end: 20190311
  5. MVI (ASCORBIC ACID (+) ERGOCALCIFEROL (+) VITAMIN A PALMITATE (+) VITA [Concomitant]
     Dosage: QUANTITY 1, DAYS 3
     Dates: start: 20190305, end: 20190307
  6. MEICELIN [Concomitant]
     Dosage: QUANTITY 1, DAYS 1
     Dates: start: 20190308, end: 20190308
  7. LIPITOR [Concomitant]
     Active Substance: ATORVASTATIN CALCIUM
     Dosage: QUANTITY 2, DAYS 2
     Dates: start: 20190326, end: 20190327
  8. DENOGAN [Concomitant]
     Active Substance: PROPACETAMOL HYDROCHLORIDE
     Dosage: QUANTITY 2, DAYS 1
     Dates: start: 20190306, end: 20190306
  9. CURAN [Concomitant]
     Active Substance: RANITIDINE HYDROCHLORIDE
     Dosage: QUANTITY 3, DAYS 2
     Dates: start: 20190326, end: 20190327
  10. TRIZELE [Concomitant]
     Active Substance: METRONIDAZOLE
     Dosage: QUANTITY 1, DAYS 1
     Dates: start: 20190306, end: 20190306
  11. SODIUM CHLORIDE. [Concomitant]
     Active Substance: SODIUM CHLORIDE
     Dosage: QUANTITIY: 3, DAYS: 3
     Dates: start: 20190306, end: 20190307
  12. URSA TABLETS [Concomitant]
     Dosage: TIMES 4, DAYS 1
     Dates: start: 20190419, end: 20190419
  13. OMACOR [Concomitant]
     Active Substance: OMEGA-3-ACID ETHYL ESTERS
     Dosage: QUANTITY 2, DAYS 3
     Dates: start: 20190325, end: 20190327
  14. KEYTRUDA [Suspect]
     Active Substance: PEMBROLIZUMAB
     Indication: OVARIAN CANCER
     Dosage: QUANTITIY: 2, DAYS: 1
     Dates: start: 20190305, end: 20190305
  15. SODIUM CHLORIDE. [Concomitant]
     Active Substance: SODIUM CHLORIDE
     Dosage: QUANTITY: 4, DAYS: 1
     Dates: start: 20190305, end: 20190305
  16. CURAN [Concomitant]
     Active Substance: RANITIDINE HYDROCHLORIDE
     Dosage: QUANTITY 1, DAYS 1
     Dates: start: 20190306, end: 20190306
  17. CURAN [Concomitant]
     Active Substance: RANITIDINE HYDROCHLORIDE
     Dosage: QUANTITY 3, DAYS 2
     Dates: start: 20190306, end: 20190307
  18. TRIZELE [Concomitant]
     Active Substance: METRONIDAZOLE
     Dosage: QUANTITY 3, DAYS 2
     Dates: start: 20190306
  19. SODIUM CHLORIDE. [Concomitant]
     Active Substance: SODIUM CHLORIDE
     Dosage: QUANTITY 1, DAYS 1
     Dates: start: 20190326, end: 20190326
  20. HARTMANN D [Concomitant]
     Dosage: QUANTITY 1, DAYS 2
     Dates: start: 20190326, end: 20190327
  21. KEYTRUDA [Suspect]
     Active Substance: PEMBROLIZUMAB
     Indication: METASTASES TO SPLEEN
     Dosage: TIMES 2, DAYS 1
     Dates: start: 20190419, end: 20190419
  22. TRISON (CEFTRIAXONE SODIUM) [Concomitant]
     Dosage: QUANTITY 1, DAYS 2
     Dates: start: 20190306, end: 20190307
  23. SODIUM CHLORIDE. [Concomitant]
     Active Substance: SODIUM CHLORIDE
     Dosage: QUANTITIY: 6, DAYS: 1
     Dates: start: 20190325, end: 20190327
  24. URSA TABLETS [Concomitant]
     Dosage: QUANTITY 1, DAYS 1
     Dates: start: 20190305, end: 20190305
  25. FLASINYL [Concomitant]
     Dosage: QUANTITY 4, DAYS 4
     Dates: start: 20190308, end: 20190311
  26. DUPHALAC [Concomitant]
     Active Substance: LACTULOSE
     Dosage: TIMES 4, DAYS 1
     Dates: start: 20190419, end: 20190419
  27. SODIUM CHLORIDE. [Concomitant]
     Active Substance: SODIUM CHLORIDE
     Dosage: JWNS(SODIUM CHLORIDE) INJ; TIMES 4, DAYS1
     Dates: start: 20190419, end: 20190419
  28. KEYTRUDA [Suspect]
     Active Substance: PEMBROLIZUMAB
     Indication: METASTASES TO LYMPH NODES
  29. HELPOVIN [Concomitant]
     Dosage: QUANTITY 2, DAYS 1
     Dates: start: 20190307, end: 20190307
  30. TRISON (CEFTRIAXONE SODIUM) [Concomitant]
     Dosage: 2G/100 ML, QUANTITY 1, DAYS 3
     Dates: start: 20190325, end: 20190327
  31. ACECLO [Concomitant]
     Dosage: QUANTITY 2, DAYS 3
     Dates: start: 20190325, end: 20190327
  32. LEGALON [Concomitant]
     Active Substance: DIETARY SUPPLEMENT\HERBALS\MILK THISTLE
     Dosage: CAP 140; TIMES 4, DAYS 1
     Dates: start: 20190419, end: 20190419
  33. URSA TABLETS [Concomitant]
     Dosage: QUANTITY: 3, DAYS: 7
     Dates: start: 20190305, end: 20190311
  34. LACIDOFIL [Concomitant]
     Active Substance: LACTOBACILLUS ACIDOPHILUS\LACTOBACILLUS RHAMNOSUS
     Dosage: QUANTITY 2, DAYS 2
     Dates: start: 20190326, end: 20190327
  35. K-CONTIN [Concomitant]
     Dosage: QUANTITY 3, DAYS 1
     Dates: start: 20190306, end: 20190306
  36. CURAN [Concomitant]
     Active Substance: RANITIDINE HYDROCHLORIDE
     Dosage: QUANTITY 2, DAYS 1
     Dates: start: 20190325, end: 20190325
  37. STERILE WATER [Concomitant]
     Active Substance: WATER
     Dosage: QUANTITY 1, DAYS 1
     Dates: start: 20190308, end: 20190308
  38. MEICELIN [Concomitant]
     Dosage: QUANTITY 1, DAYS 1
     Dates: start: 20190308, end: 20190308
  39. HARTMANN D [Concomitant]
     Dosage: QUANTITY 1, DAYS 3
     Dates: start: 20190305, end: 20190307

REACTIONS (7)
  - Adverse event [Unknown]
  - Transfusion [Unknown]
  - Inappropriate schedule of product administration [Unknown]
  - Transfusion [Unknown]
  - Adverse event [Unknown]
  - Product use in unapproved indication [Unknown]
  - Inappropriate schedule of product administration [Unknown]

NARRATIVE: CASE EVENT DATE: 2019
